FAERS Safety Report 4438754-0 (Version None)
Quarter: 2004Q3

REPORT INFORMATION
  Report Type: 
  Country: None (occurrence: None)
  Receive Date: 20040830
  Receipt Date: 20040817
  Transmission Date: 20050211
  Serious: Yes (Death, Hospitalization)
  Sender: FDA-Public Use
  Company Number: 2004UW08361

PATIENT
  Age: 54 Year
  Sex: Male
  Weight: 52.1637 kg

DRUGS (4)
  1. IRESSA [Suspect]
     Indication: NON-SMALL CELL LUNG CANCER
     Dosage: 250 MG QD PO
     Route: 048
     Dates: start: 20030529, end: 20040417
  2. UNSPECIFIED PAIN MEDICATIONS [Concomitant]
  3. DIGOXIN [Concomitant]
  4. TESSALON [Concomitant]

REACTIONS (8)
  - ANAEMIA [None]
  - CORONARY ARTERY DISEASE [None]
  - HYPERTENSION [None]
  - METASTASES TO ADRENALS [None]
  - METASTASES TO OESOPHAGUS [None]
  - NON-SMALL CELL LUNG CANCER [None]
  - TACHYCARDIA [None]
  - TERMINAL STATE [None]
